FAERS Safety Report 17369207 (Version 7)
Quarter: 2020Q3

REPORT INFORMATION
  Report Type: Report from Study
  Country: US (occurrence: US)
  Receive Date: 20200204
  Receipt Date: 20200822
  Transmission Date: 20201102
  Serious: No
  Sender: FDA-Public Use
  Company Number: NVSC2020US027498

PATIENT
  Age: 71 Year
  Sex: Female

DRUGS (6)
  1. BEOVU [Suspect]
     Active Substance: BROLUCIZUMAB-DBLL
     Indication: NEOVASCULAR AGE-RELATED MACULAR DEGENERATION
     Dosage: 6 MG, UNKNOWN
     Route: 047
     Dates: start: 20190107
  2. BETADINE [Suspect]
     Active Substance: POVIDONE-IODINE
     Indication: PRODUCT USED FOR UNKNOWN INDICATION
     Dosage: UNK
     Route: 065
  3. EYLEA [Suspect]
     Active Substance: AFLIBERCEPT
     Dosage: UNK (BOTH EYES)
     Route: 065
  4. BEOVU [Suspect]
     Active Substance: BROLUCIZUMAB-DBLL
     Dosage: 6 MG, UNKNOWN (VIAL)
     Route: 047
     Dates: start: 20200107
  5. EYLEA [Suspect]
     Active Substance: AFLIBERCEPT
     Indication: PRODUCT USED FOR UNKNOWN INDICATION
     Dosage: UNK UNK, QMO (ONE EYE)
     Route: 065
  6. BEOVU [Suspect]
     Active Substance: BROLUCIZUMAB-DBLL
     Dosage: UNK
     Route: 047
     Dates: start: 20200707

REACTIONS (13)
  - Injection site haemorrhage [Unknown]
  - Constipation [Unknown]
  - Dry throat [Unknown]
  - Nasal dryness [Unknown]
  - Lacrimation increased [Recovering/Resolving]
  - Cough [Unknown]
  - Dry eye [Unknown]
  - Vision blurred [Unknown]
  - Rhinorrhoea [Recovering/Resolving]
  - Dry mouth [Unknown]
  - Presbyopia [Unknown]
  - Visual impairment [Unknown]
  - Vitreous floaters [Unknown]

NARRATIVE: CASE EVENT DATE: 20200204
